FAERS Safety Report 25714429 (Version 1)
Quarter: 2025Q3

REPORT INFORMATION
  Report Type: Spontaneous
  Country: US (occurrence: US)
  Receive Date: 20250822
  Receipt Date: 20250822
  Transmission Date: 20251021
  Serious: Yes (Other)
  Sender: GERON CORP
  Company Number: US-GERON CORPORATION-US-GER-25-000201

PATIENT
  Sex: Male

DRUGS (2)
  1. RYTELO [Suspect]
     Active Substance: IMETELSTAT SODIUM
     Indication: Myelodysplastic syndrome
     Route: 065
     Dates: start: 20250415
  2. RYTELO [Suspect]
     Active Substance: IMETELSTAT SODIUM
     Route: 065

REACTIONS (2)
  - Haemoglobin decreased [Unknown]
  - Platelet count decreased [Unknown]
